FAERS Safety Report 8548514-7 (Version None)
Quarter: 2012Q2

REPORT INFORMATION
  Report Type: 
  Country: None (occurrence: None)
  Receive Date: 20120416
  Receipt Date: 20110712
  Transmission Date: 20120825
  Serious: Yes (Other)
  Sender: FDA-Public Use
  Company Number: PHHY2011US23272

PATIENT
  Age: 81 Year
  Sex: Male

DRUGS (3)
  1. PRAVACHOL [Concomitant]
  2. DIOVAN [Suspect]
     Dosage: 160 MG, QD, ORAL
     Route: 048
  3. TARKA [Concomitant]

REACTIONS (8)
  - PROTEINURIA [None]
  - LOSS OF CONSCIOUSNESS [None]
  - HEART RATE INCREASED [None]
  - MALAISE [None]
  - HYPOTENSION [None]
  - DIARRHOEA [None]
  - HYPERHIDROSIS [None]
  - FEELING ABNORMAL [None]
